FAERS Safety Report 26069803 (Version 1)
Quarter: 2025Q4

REPORT INFORMATION
  Report Type: Spontaneous
  Country: US (occurrence: US)
  Receive Date: 20251120
  Receipt Date: 20251120
  Transmission Date: 20260118
  Serious: No
  Sender: CATALYST PHARMA
  Company Number: US-CATALYST PHARMACEUTICALS-US-CATA-25-01350

PATIENT
  Age: 2 Year
  Sex: Male
  Weight: 14.059 kg

DRUGS (2)
  1. AGAMREE [Suspect]
     Active Substance: VAMOROLONE
     Indication: Duchenne muscular dystrophy
     Dosage: 2 ML DAILY
     Route: 048
     Dates: start: 20250813
  2. VITAMIN D2 + K1 [Concomitant]
     Indication: Hypovitaminosis
     Dosage: 20-120 MCG/0.1M DAILY
     Route: 048

REACTIONS (5)
  - Thirst [Recovered/Resolved]
  - Aggression [Not Recovered/Not Resolved]
  - Emotional disorder [Not Recovered/Not Resolved]
  - Increased appetite [Not Recovered/Not Resolved]
  - Sleep disorder [Recovering/Resolving]

NARRATIVE: CASE EVENT DATE: 20250801
